FAERS Safety Report 7078529-X (Version None)
Quarter: 2010Q4

REPORT INFORMATION
  Report Type: 
  Country: None (occurrence: None)
  Receive Date: 20101101
  Receipt Date: 20101101
  Transmission Date: 20110411
  Serious: Yes (Other)
  Sender: FDA-Public Use
  Company Number: None

PATIENT
  Sex: Female
  Weight: 54.4316 kg

DRUGS (2)
  1. VISIBLE LIFT FOUNDATION SPF 17 LOREAL [Suspect]
     Dosage: DAILY
     Dates: end: 20080514
  2. PURPOSE MOISTURIZER SPF JOHNSON + JOHNSON [Suspect]
     Dosage: DAILY AND NIGHTLY SEVERAL YEARS
     Dates: end: 20080514

REACTIONS (4)
  - BREAST CANCER FEMALE [None]
  - FATIGUE [None]
  - INFLUENZA LIKE ILLNESS [None]
  - PARAESTHESIA [None]
